FAERS Safety Report 7769798-9 (Version None)
Quarter: 2011Q3

REPORT INFORMATION
  Report Type: 
  Country: None (occurrence: None)
  Receive Date: 20110922
  Receipt Date: 20110113
  Transmission Date: 20111222
  Serious: No
  Sender: FDA-Public Use
  Company Number: US-ASTRAZENECA-2008UW16297

PATIENT
  Age: 622 Month
  Sex: Male
  Weight: 132.4 kg

DRUGS (21)
  1. SEROQUEL [Suspect]
     Dosage: 200MG -300 MG
     Route: 048
     Dates: start: 20020314
  2. MIRTAZAPINE [Concomitant]
     Indication: SLEEP DISORDER
     Dosage: 15 MG TAB TAKE ONE-HALF TO ONE TABLET BY MOUTH AT BEDTIME
     Route: 048
     Dates: start: 20020118
  3. SEROQUEL [Suspect]
     Dosage: 100 MG TO 300 MG
     Route: 048
     Dates: start: 20010901, end: 20050701
  4. METOPROLOL TARTRATE [Concomitant]
     Dosage: 100 MG TAB TAKE ONE-HALF TABLET BY MOUTH TWICE A DAY
     Route: 048
     Dates: start: 20020118
  5. ABILIFY [Concomitant]
     Dates: start: 20040105
  6. ASPIRIN [Concomitant]
     Route: 048
     Dates: start: 20020118
  7. SEROQUEL [Suspect]
     Indication: BIPOLAR DISORDER
     Dosage: 100 MG TO 500 MG DAILY
     Route: 048
     Dates: start: 20010906
  8. CLONAZEPAM [Concomitant]
     Dosage: 1- 2MG Q DAY
     Route: 048
     Dates: start: 20020118
  9. RISPERIDONE [Concomitant]
     Route: 048
     Dates: start: 20020118
  10. SIMVASTATIN [Concomitant]
     Dosage: 80 MG TAB TAKE ONE-HALF TABLET AT BEDTIME
     Route: 048
     Dates: start: 20020118
  11. HALDOL [Concomitant]
  12. COLESTIPOL HYDROCHLORIDE [Concomitant]
     Dosage: 1 GM TABLET TAKE ONE TABLET BY MOUTH TWICE A DAY
     Route: 048
     Dates: start: 20020118
  13. SEROQUEL [Suspect]
     Indication: PSYCHOTIC DISORDER
     Dosage: 100 MG TO 500 MG DAILY
     Route: 048
     Dates: start: 20010906
  14. SEROQUEL [Suspect]
     Dosage: 200MG -300 MG
     Route: 048
     Dates: start: 20020314
  15. CARBAMAZEPINE [Concomitant]
     Dosage: 200 MG TAB TAKE ONE TABLET BY MOUTH EVERY MORNING AND TAKE TWO TABLETS BY MOUTH AT BEDTIME
     Route: 048
     Dates: start: 20020118
  16. CODEINE 30/ACETAMINOPHEN 300MG [Concomitant]
     Indication: PAIN
     Dosage: 30/300MG TAKE 1 TABLET TWO TIMES DAILY AS NEEDED
     Route: 048
     Dates: start: 20020118
  17. SEROQUEL [Suspect]
     Dosage: 100 MG TO 300 MG
     Route: 048
     Dates: start: 20010901, end: 20050701
  18. DOCUSATE NA [Concomitant]
     Route: 048
     Dates: start: 20020118
  19. HYDROXYZINE HCL [Concomitant]
     Indication: ANXIETY
     Route: 048
     Dates: start: 20020118
  20. MIRTAZAPINE [Concomitant]
     Indication: DEPRESSION
     Dosage: 15 MG TAB TAKE ONE-HALF TO ONE TABLET BY MOUTH AT BEDTIME
     Route: 048
     Dates: start: 20020118
  21. TRILEPTAL [Concomitant]
     Dates: start: 20040105

REACTIONS (3)
  - NORMAL TENSION GLAUCOMA [None]
  - HYPOGLYCAEMIA [None]
  - TYPE 2 DIABETES MELLITUS [None]
